FAERS Safety Report 7299046-8 (Version None)
Quarter: 2011Q1

REPORT INFORMATION
  Report Type: 
  Country: None (occurrence: None)
  Receive Date: 20110217
  Receipt Date: 20110210
  Transmission Date: 20110831
  Serious: Yes (Other)
  Sender: FDA-Public Use
  Company Number: US-B.I. PHARMACEUTICALS,INC./RIDGEFIELD-2011-BP-02721BP

PATIENT
  Age: 19 Year
  Sex: Female

DRUGS (1)
  1. DULCOLAX [Suspect]
     Indication: COLONOSCOPY
     Dosage: 10 MG
     Route: 054
     Dates: start: 20110210

REACTIONS (1)
  - RECTAL HAEMORRHAGE [None]
